FAERS Safety Report 8016221-5 (Version None)
Quarter: 2011Q4

REPORT INFORMATION
  Report Type: 
  Country: None (occurrence: None)
  Receive Date: 20111230
  Receipt Date: 20111219
  Transmission Date: 20120403
  Serious: Yes (Hospitalization, Other)
  Sender: FDA-Public Use
  Company Number: US-ELI_LILLY_AND_COMPANY-US201112005680

PATIENT
  Age: 73 Year
  Sex: Male

DRUGS (2)
  1. GEMCITABINE HYDROCHLORIDE [Suspect]
     Indication: TRANSITIONAL CELL CARCINOMA
     Dosage: 1000 MG/M2, UNKNOWN
  2. CISPLATIN [Concomitant]
     Indication: TRANSITIONAL CELL CARCINOMA
     Dosage: 70 MG/M2, UNKNOWN

REACTIONS (2)
  - ACCIDENTAL OVERDOSE [None]
  - THROMBOTIC MICROANGIOPATHY [None]
